FAERS Safety Report 23280693 (Version 1)
Quarter: 2023Q4

REPORT INFORMATION
  Report Type: Report from Study
  Country: US (occurrence: US)
  Receive Date: 20231211
  Receipt Date: 20231211
  Transmission Date: 20240109
  Serious: Yes (Other)
  Sender: FDA-Public Use
  Company Number: US-JAZZ PHARMACEUTICALS-2023-US-023999

PATIENT
  Sex: Female

DRUGS (2)
  1. EPIDIOLEX [Suspect]
     Active Substance: CANNABIDIOL
     Indication: Seizure
     Dosage: 0.25 MILLILITER, BID, IN MORNING AND AT BEDTIME FOR 7 DAYS
     Route: 048
     Dates: start: 202311
  2. EPIDIOLEX [Suspect]
     Active Substance: CANNABIDIOL
     Indication: Seizure
     Dosage: 0.5 MILLILITER, BID,IN MORNING AND AT BEDTIME
     Route: 048
     Dates: start: 202311

REACTIONS (1)
  - Seizure [Unknown]
